FAERS Safety Report 6608310-4 (Version None)
Quarter: 2010Q1

REPORT INFORMATION
  Report Type: 
  Country: None (occurrence: None)
  Receive Date: 20100223
  Receipt Date: 20100212
  Transmission Date: 20100710
  Serious: Yes (Life-Threatening, Other)
  Sender: FDA-Public Use
  Company Number: AUR-APU-2010-00446

PATIENT
  Sex: Male

DRUGS (1)
  1. CEFDINIR [Suspect]

REACTIONS (3)
  - DYSPNOEA [None]
  - LIP SWELLING [None]
  - SWELLING FACE [None]
